FAERS Safety Report 13065523 (Version 1)
Quarter: 2016Q4

REPORT INFORMATION
  Report Type: Spontaneous
  Country: MX (occurrence: MX)
  Receive Date: 20161227
  Receipt Date: 20161227
  Transmission Date: 20170207
  Serious: Yes (Other)
  Sender: FDA-Public Use
  Company Number: MX-PFIZER INC-2016596394

PATIENT
  Age: 62 Year
  Sex: Female

DRUGS (1)
  1. ACUPRIL [Suspect]
     Active Substance: QUINAPRIL HYDROCHLORIDE

REACTIONS (2)
  - Seizure [Not Recovered/Not Resolved]
  - Joint injury [Not Recovered/Not Resolved]
